FAERS Safety Report 17630018 (Version 1)
Quarter: 2020Q2

REPORT INFORMATION
  Report Type: Spontaneous
  Country: US (occurrence: US)
  Receive Date: 20200403
  Receipt Date: 20200403
  Transmission Date: 20200713
  Serious: Yes (Hospitalization)
  Sender: FDA-Public Use
  Company Number: None

PATIENT
  Age: 25 Year
  Sex: Male

DRUGS (6)
  1. PREDNISONE. [Concomitant]
     Active Substance: PREDNISONE
  2. LIDOCAINE. [Concomitant]
     Active Substance: LIDOCAINE
  3. IBRUPROFEN [Concomitant]
     Active Substance: IBUPROFEN
  4. RISAQUAD [Concomitant]
  5. METHOTREXATE. [Concomitant]
     Active Substance: METHOTREXATE
  6. HUMIRA [Suspect]
     Active Substance: ADALIMUMAB
     Indication: PRODUCT USED FOR UNKNOWN INDICATION
     Dosage: ?          OTHER FREQUENCY:QW;?
     Route: 058
     Dates: start: 20190216

REACTIONS (3)
  - Dehydration [None]
  - Fistula of small intestine [None]
  - Crohn^s disease [None]

NARRATIVE: CASE EVENT DATE: 20200220
